FAERS Safety Report 7456797-X (Version None)
Quarter: 2011Q2

REPORT INFORMATION
  Report Type: 
  Country: None (occurrence: None)
  Receive Date: 20110504
  Receipt Date: 20110425
  Transmission Date: 20111010
  Serious: Yes (Hospitalization)
  Sender: FDA-Public Use
  Company Number: 2006BI008165

PATIENT
  Age: 49 Year
  Sex: Female
  Weight: 70 kg

DRUGS (3)
  1. AVONEX [Suspect]
     Route: 030
     Dates: start: 20050101, end: 20060101
  2. AVONEX [Suspect]
     Route: 030
     Dates: start: 20000101, end: 20050801
  3. AVONEX [Suspect]
     Indication: MULTIPLE SCLEROSIS
     Route: 030
     Dates: start: 20060101

REACTIONS (16)
  - FAECAL INCONTINENCE [None]
  - WEIGHT INCREASED [None]
  - MUSCLE TIGHTNESS [None]
  - STRESS [None]
  - BACK PAIN [None]
  - DYSSTASIA [None]
  - HYPOTONIA [None]
  - MEMORY IMPAIRMENT [None]
  - NERVE INJURY [None]
  - ADVERSE DRUG REACTION [None]
  - INSOMNIA [None]
  - SPINAL DISORDER [None]
  - FACET JOINT SYNDROME [None]
  - INFLUENZA LIKE ILLNESS [None]
  - WEIGHT DECREASED [None]
  - SPINAL COLUMN STENOSIS [None]
